FAERS Safety Report 14338874 (Version 6)
Quarter: 2018Q2

REPORT INFORMATION
  Report Type: Spontaneous
  Country: US (occurrence: US)
  Receive Date: 20171229
  Receipt Date: 20180622
  Transmission Date: 20180711
  Serious: Yes (Other)
  Sender: FDA-Public Use
  Company Number: PHEH2017US042214

PATIENT
  Sex: Female

DRUGS (2)
  1. LENVATINIB [Suspect]
     Active Substance: LENVATINIB
     Indication: RENAL CANCER
     Dosage: 10 MG, QD
     Route: 048
  2. AFINITOR [Suspect]
     Active Substance: EVEROLIMUS
     Indication: RENAL CANCER
     Dosage: UNK
     Route: 065

REACTIONS (17)
  - Decreased appetite [Not Recovered/Not Resolved]
  - Skin cancer [Unknown]
  - Headache [Unknown]
  - Burning sensation [Recovered/Resolved]
  - Stomatitis [Recovered/Resolved]
  - Diarrhoea [Recovered/Resolved]
  - Peripheral swelling [Recovered/Resolved]
  - Pollakiuria [Unknown]
  - Glossodynia [Recovered/Resolved]
  - Hypoaesthesia [Not Recovered/Not Resolved]
  - Musculoskeletal stiffness [Unknown]
  - Weight decreased [Recovered/Resolved]
  - Fatigue [Recovered/Resolved]
  - Insomnia [Unknown]
  - Rash [Recovered/Resolved]
  - Fatigue [Unknown]
  - Rash [Recovered/Resolved]
